FAERS Safety Report 21942465 (Version 1)
Quarter: 2023Q1

REPORT INFORMATION
  Report Type: Report from Study
  Country: US (occurrence: US)
  Receive Date: 20230202
  Receipt Date: 20230202
  Transmission Date: 20230418
  Serious: No
  Sender: FDA-Public Use
  Company Number: US-EXELIXIS-CABO-22057970

PATIENT
  Sex: Female

DRUGS (7)
  1. CABOMETYX [Suspect]
     Active Substance: CABOZANTINIB S-MALATE
     Indication: Renal cancer
     Dosage: 40 MG
     Dates: start: 20221006
  2. CABOMETYX [Suspect]
     Active Substance: CABOZANTINIB S-MALATE
     Dosage: 40 MG
  3. CABOMETYX [Suspect]
     Active Substance: CABOZANTINIB S-MALATE
     Dosage: 40 MG
  4. MIRALAX [Concomitant]
     Active Substance: POLYETHYLENE GLYCOL 3350
  5. ACETAMINOPHEN [Concomitant]
     Active Substance: ACETAMINOPHEN
  6. NORCO [Concomitant]
     Active Substance: ACETAMINOPHEN\HYDROCODONE BITARTRATE
  7. MOTRIN [Concomitant]
     Active Substance: IBUPROFEN

REACTIONS (9)
  - Acne [Recovered/Resolved]
  - Ageusia [Not Recovered/Not Resolved]
  - Nausea [Unknown]
  - Dizziness [Not Recovered/Not Resolved]
  - Vomiting [Unknown]
  - Dry mouth [Not Recovered/Not Resolved]
  - Dry skin [Unknown]
  - Neoplasm [Unknown]
  - Product dose omission issue [Unknown]
